FAERS Safety Report 8957350 (Version 2)
Quarter: 2013Q1

REPORT INFORMATION
  Report Type: Spontaneous
  Country: US (occurrence: US)
  Receive Date: 20121210
  Receipt Date: 20130308
  Transmission Date: 20140127
  Serious: No
  Sender: FDA-Public Use
  Company Number: US-ASTELLAS-2012US011005

PATIENT
  Age: 0 None
  Sex: Male

DRUGS (8)
  1. XTANDI [Suspect]
     Indication: PROSTATE CANCER METASTATIC
     Dosage: 2 DF, BID
     Route: 048
     Dates: start: 20121031
  2. XTANDI [Suspect]
     Dosage: 1 DF, UID/QD
     Route: 048
     Dates: start: 20121214
  3. TRELSTAR [Concomitant]
     Indication: PROSTATE CANCER
     Dosage: EVERY 3 MONTHS
     Route: 042
  4. ZOMETA [Concomitant]
     Indication: PROSTATE CANCER
     Dosage: UNK
     Route: 042
  5. AMIODARONE [Concomitant]
     Indication: ATRIAL FIBRILLATION
     Dosage: 200 MG, UID/QD
     Route: 065
  6. BUMEX [Concomitant]
     Indication: PRODUCT USED FOR UNKNOWN INDICATION
     Dosage: UNK
     Route: 065
  7. ASPIRIN [Concomitant]
     Indication: PRODUCT USED FOR UNKNOWN INDICATION
     Dosage: 325 MG, UNKNOWN/D
     Route: 065
  8. TAMSULOSIN [Concomitant]
     Indication: PRODUCT USED FOR UNKNOWN INDICATION
     Dosage: UNK
     Route: 065

REACTIONS (8)
  - Retching [Recovered/Resolved]
  - Regurgitation [Recovered/Resolved]
  - Foreign body [Recovered/Resolved]
  - Burning sensation [Unknown]
  - Dysphonia [Recovered/Resolved]
  - Dysphagia [Unknown]
  - Product size issue [Unknown]
  - Anxiety [Unknown]
